FAERS Safety Report 10370799 (Version 1)
Quarter: 2014Q1

REPORT INFORMATION
  Report Type: Spontaneous
  Country: US (occurrence: None)
  Receive Date: 20140306
  Receipt Date: 20140306
  Transmission Date: 20141002
  Serious: Yes (Other)
  Sender: FDA-Public Use
  Company Number: 163-21880-13080910

PATIENT
  Age: 61 Year
  Sex: Female
  Weight: 77.11 kg

DRUGS (2)
  1. REVLIMID (LENALIDOMIDE) (25 MILLIGRAM, CAPSULES) [Suspect]
     Indication: PLASMA PROTEIN METABOLISM DISORDER
     Route: 048
     Dates: start: 20130318
  2. VASOTEC (ENALAPRIL MALEATE) (TABLETS) [Concomitant]

REACTIONS (2)
  - Loss of consciousness [None]
  - Hypotension [None]
